FAERS Safety Report 4336395-7 (Version None)
Quarter: 2004Q2

REPORT INFORMATION
  Report Type: 
  Country: None (occurrence: None)
  Receive Date: 20040407
  Receipt Date: 20040329
  Transmission Date: 20050107
  Serious: Yes (Hospitalization)
  Sender: FDA-Public Use
  Company Number: 2004021332

PATIENT
  Age: 44 Year
  Sex: Male
  Weight: 92.9874 kg

DRUGS (1)
  1. NASALCROM [Suspect]
     Indication: SEASONAL ALLERGY
     Dosage: 1 SPRAY PER NOSTRIL QD, NASAL
     Route: 045
     Dates: start: 20030101, end: 20030501

REACTIONS (2)
  - DYSPNOEA [None]
  - HEART RATE INCREASED [None]
